FAERS Safety Report 7328569-8 (Version None)
Quarter: 2011Q1

REPORT INFORMATION
  Report Type: 
  Country: None (occurrence: None)
  Receive Date: 20110303
  Receipt Date: 20110210
  Transmission Date: 20110831
  Serious: Yes (Death, Other)
  Sender: FDA-Public Use
  Company Number: US-BAYER-200934887NA

PATIENT
  Sex: Female
  Weight: 61.814 kg

DRUGS (9)
  1. IMDUR [Concomitant]
     Indication: PRODUCT USED FOR UNKNOWN INDICATION
     Dosage: 30 MG, QD
     Dates: start: 20051010
  2. TRASYLOL [Suspect]
     Indication: TRICUSPID VALVE REPAIR
  3. TRASYLOL [Suspect]
     Indication: MITRAL VALVE REPLACEMENT
     Route: 042
     Dates: start: 20060129
  4. COREG [Concomitant]
     Indication: PRODUCT USED FOR UNKNOWN INDICATION
     Dosage: 3.325 MG, QD
     Route: 048
     Dates: start: 20051010
  5. ASPIRIN [Concomitant]
     Indication: PRODUCT USED FOR UNKNOWN INDICATION
     Dosage: HALF OF 325 MG DAILY
     Route: 048
     Dates: start: 20051010
  6. ALTACE [Concomitant]
     Indication: PRODUCT USED FOR UNKNOWN INDICATION
     Dosage: 5 MG, QD
     Route: 048
     Dates: start: 20051010
  7. ZESTRIL [Concomitant]
     Indication: PRODUCT USED FOR UNKNOWN INDICATION
     Dosage: 10 MG, QD
     Route: 048
     Dates: start: 20050808
  8. LASIX [Concomitant]
     Indication: PRODUCT USED FOR UNKNOWN INDICATION
     Dosage: 40 MG, QD
     Route: 048
     Dates: start: 20051010
  9. PREVACID [Concomitant]
     Indication: PRODUCT USED FOR UNKNOWN INDICATION
     Dosage: 30 MG, QD
     Route: 048
     Dates: start: 20051010

REACTIONS (12)
  - INJURY [None]
  - UNEVALUABLE EVENT [None]
  - PAIN [None]
  - MULTI-ORGAN FAILURE [None]
  - DEATH [None]
  - RENAL IMPAIRMENT [None]
  - RENAL FAILURE [None]
  - RENAL INJURY [None]
  - FEAR [None]
  - STRESS [None]
  - ANXIETY [None]
  - EMOTIONAL DISTRESS [None]
